FAERS Safety Report 25196642 (Version 2)
Quarter: 2025Q2

REPORT INFORMATION
  Report Type: Spontaneous
  Country: DE (occurrence: DE)
  Receive Date: 20250415
  Receipt Date: 20250627
  Transmission Date: 20250716
  Serious: Yes (Hospitalization)
  Sender: TEVA
  Company Number: None

PATIENT
  Age: 65 Year
  Sex: Female
  Weight: 60 kg

DRUGS (1)
  1. CIPROFLOXACIN [Suspect]
     Active Substance: CIPROFLOXACIN
     Indication: Enterobacter infection
     Route: 048
     Dates: start: 201711, end: 201712

REACTIONS (11)
  - Musculoskeletal disorder [Recovered/Resolved with Sequelae]
  - Condition aggravated [Unknown]
  - Myalgia [Unknown]
  - Asthenia [Recovered/Resolved with Sequelae]
  - Pain [Recovered/Resolved with Sequelae]
  - Joint noise [Unknown]
  - Muscular weakness [Unknown]
  - Pain [Unknown]
  - Muscle discomfort [Unknown]
  - Hypotonia [Unknown]
  - Musculoskeletal pain [Unknown]

NARRATIVE: CASE EVENT DATE: 20170201
